FAERS Safety Report 24360501 (Version 3)
Quarter: 2024Q4

REPORT INFORMATION
  Report Type: Spontaneous
  Country: US (occurrence: US)
  Receive Date: 20240925
  Receipt Date: 20241225
  Transmission Date: 20250115
  Serious: Yes (Hospitalization)
  Sender: AMGEN
  Company Number: US-AMGEN-USASP2024188257

PATIENT
  Age: 40 Year
  Sex: Female
  Weight: 54.8 kg

DRUGS (6)
  1. PROCRIT [Suspect]
     Active Substance: ERYTHROPOIETIN
     Indication: Nephrogenic anaemia
     Dosage: UNK, QD (10,000 TO 30,000 WEEKLY)
     Route: 058
     Dates: start: 20231006
  2. PROCRIT [Suspect]
     Active Substance: ERYTHROPOIETIN
     Dosage: UNK UNK, QD (10,000 TO 30,000 WEEKLY)
     Route: 058
  3. PROCRIT [Suspect]
     Active Substance: ERYTHROPOIETIN
     Dosage: UNK UNK, QD (10,000 TO 30,000 WEEKLY)
     Route: 058
  4. PROCRIT [Suspect]
     Active Substance: ERYTHROPOIETIN
     Dosage: UNK UNK, QD (10,000 TO 30,000 WEEKLY)
     Route: 058
     Dates: start: 20240627, end: 20240627
  5. ARANESP [Suspect]
     Active Substance: DARBEPOETIN ALFA
     Indication: Nephrogenic anaemia
     Dosage: UNK
     Route: 065
     Dates: start: 202407
  6. MIRCERA [Concomitant]
     Active Substance: METHOXY POLYETHYLENE GLYCOL-EPOETIN BETA
     Indication: Product used for unknown indication
     Dosage: UNK
     Dates: start: 202410

REACTIONS (3)
  - Anaemia [Not Recovered/Not Resolved]
  - Reticulocyte count decreased [Unknown]
  - Drug ineffective [Unknown]
